FAERS Safety Report 7421312-3 (Version None)
Quarter: 2011Q2

REPORT INFORMATION
  Report Type: 
  Country: None (occurrence: None)
  Receive Date: 20110418
  Receipt Date: 20110404
  Transmission Date: 20111010
  Serious: Yes (Other)
  Sender: FDA-Public Use
  Company Number: CA-JNJFOC-20110402621

PATIENT
  Sex: Female
  Weight: 85 kg

DRUGS (5)
  1. REMICADE [Suspect]
     Route: 042
  2. METHADONE [Concomitant]
     Route: 065
  3. REMICADE [Suspect]
     Indication: PSORIATIC ARTHROPATHY
     Route: 042
  4. CELEXA [Concomitant]
     Route: 065
  5. OXYCONTIN [Concomitant]
     Route: 065

REACTIONS (1)
  - DIVERTICULITIS [None]
